FAERS Safety Report 5117595-5 (Version None)
Quarter: 2006Q3

REPORT INFORMATION
  Report Type: 
  Country: None (occurrence: None)
  Receive Date: 20060926
  Receipt Date: 20060911
  Transmission Date: 20061208
  Serious: Yes (Death, Life-Threatening)
  Sender: FDA-Public Use
  Company Number: BE200609003094

PATIENT
  Age: 38 Year
  Sex: Female

DRUGS (6)
  1. KEFZOL (CEFAZOLIN SODIUM UNKNOWN MANUFACTURER) UNKNOWN [Suspect]
     Indication: PROPHYLAXIS
     Dosage: 4 G
  2. RANITIDINE [Concomitant]
  3. METHYLPREDNISOLONE [Concomitant]
  4. KETOROLAC TROMETHAMINE [Concomitant]
  5. PARACETAMOL [Concomitant]
  6. DEXAMETHASONE TAB [Concomitant]

REACTIONS (6)
  - CARDIOGENIC SHOCK [None]
  - CARDIOMEGALY [None]
  - DRUG HYPERSENSITIVITY [None]
  - EOSINOPHILIC MYOCARDITIS [None]
  - PULMONARY CONGESTION [None]
  - RESPIRATORY ARREST [None]
